FAERS Safety Report 15533540 (Version 3)
Quarter: 2018Q4

REPORT INFORMATION
  Report Type: Spontaneous
  Country: BY (occurrence: BY)
  Receive Date: 20181019
  Receipt Date: 20181101
  Transmission Date: 20190205
  Serious: Yes (Other)
  Sender: FDA-Public Use
  Company Number: PHHY2018BY126573

PATIENT
  Age: 49 Year
  Sex: Male
  Weight: 188 kg

DRUGS (14)
  1. CLOFAZIMINE [Suspect]
     Active Substance: CLOFAZIMINE
     Dosage: 100 OT, QD
     Route: 048
     Dates: start: 20180807
  2. DELAMANID [Suspect]
     Active Substance: DELAMANID
     Dosage: 200 OT, QD
     Route: 048
     Dates: start: 20180807
  3. OMEPRAZOL [Concomitant]
     Active Substance: OMEPRAZOLE
     Indication: PRODUCT USED FOR UNKNOWN INDICATION
     Route: 065
  4. AMOXICILLIN-CLAVULANIC ACID [Suspect]
     Active Substance: AMOXICILLIN\CLAVULANIC ACID
     Indication: TUBERCULOSIS
     Dosage: 2500 OT, QD
     Route: 042
     Dates: start: 20170426, end: 20180723
  5. CLOFAZIMINE [Suspect]
     Active Substance: CLOFAZIMINE
     Indication: TUBERCULOSIS
     Dosage: 100 OT, QD
     Route: 048
     Dates: start: 20170426, end: 20180723
  6. LINEZOLID. [Suspect]
     Active Substance: LINEZOLID
     Dosage: 600 OT, QD
     Route: 048
     Dates: start: 20180807
  7. CILASTATIN/IMIPEN [Suspect]
     Active Substance: CILASTATIN SODIUM\IMIPENEM
     Dosage: 2000 OT, QD
     Route: 042
     Dates: start: 20180807
  8. GLUCOSE [Concomitant]
     Active Substance: DEXTROSE
     Indication: PRODUCT USED FOR UNKNOWN INDICATION
     Route: 065
  9. AMOXICILLIN-CLAVULANIC ACID [Suspect]
     Active Substance: AMOXICILLIN\CLAVULANIC ACID
     Dosage: 2500 OT, QD
     Route: 048
     Dates: start: 20180807
  10. DELAMANID [Suspect]
     Active Substance: DELAMANID
     Indication: TUBERCULOSIS
     Dosage: 200 OT, QD
     Route: 048
     Dates: start: 20170426, end: 20180723
  11. MOXIFLOXACIN. [Suspect]
     Active Substance: MOXIFLOXACIN
     Indication: TUBERCULOSIS
     Dosage: 400 OT, QD
     Route: 048
     Dates: start: 20170426, end: 20180723
  12. LINEZOLID. [Suspect]
     Active Substance: LINEZOLID
     Indication: TUBERCULOSIS
     Dosage: 600 OT, QD
     Route: 048
     Dates: start: 20170426, end: 20180723
  13. MOXIFLOXACIN. [Suspect]
     Active Substance: MOXIFLOXACIN
     Dosage: 400 OT, QD
     Route: 048
     Dates: start: 20180807
  14. CILASTATIN/IMIPEN [Suspect]
     Active Substance: CILASTATIN SODIUM\IMIPENEM
     Indication: TUBERCULOSIS
     Dosage: 200 OT, QD
     Route: 042
     Dates: start: 20170426, end: 20180723

REACTIONS (5)
  - Alcohol poisoning [Unknown]
  - Platelet count decreased [Unknown]
  - Red blood cell count decreased [Unknown]
  - Hepatitis toxic [Recovered/Resolved]
  - Incorrect product administration duration [Unknown]

NARRATIVE: CASE EVENT DATE: 20180205
